FAERS Safety Report 13199920 (Version 1)
Quarter: 2017Q1

REPORT INFORMATION
  Report Type: Spontaneous
  Country: US (occurrence: US)
  Receive Date: 20170208
  Receipt Date: 20170208
  Transmission Date: 20170428
  Serious: No
  Sender: FDA-Public Use
  Company Number: US-ACTELION-A-NJ2017-149584

PATIENT
  Age: 13 Year
  Sex: Female
  Weight: 58.4 kg

DRUGS (9)
  1. UPTRAVI [Suspect]
     Active Substance: SELEXIPAG
     Indication: PULMONARY ARTERIAL HYPERTENSION
     Dosage: 1200 MCG, BID
     Route: 048
  2. OXYGEN. [Concomitant]
     Active Substance: OXYGEN
  3. AMBRISENTAN [Suspect]
     Active Substance: AMBRISENTAN
     Indication: PULMONARY ARTERIAL HYPERTENSION
     Dosage: 5 MG, QD
     Route: 048
     Dates: start: 20160912
  4. CLARITIN [Concomitant]
     Active Substance: LORATADINE
  5. REMODULIN [Suspect]
     Active Substance: TREPROSTINIL
     Indication: PRODUCT USED FOR UNKNOWN INDICATION
     Dosage: 40 NG/KG, CONTINUING
     Route: 058
  6. LASIX [Concomitant]
     Active Substance: FUROSEMIDE
  7. ADCIRCA [Concomitant]
     Active Substance: TADALAFIL
  8. REVATIO [Concomitant]
     Active Substance: SILDENAFIL CITRATE
  9. UPTRAVI [Suspect]
     Active Substance: SELEXIPAG
     Dosage: 1000 MCG, BID
     Route: 048

REACTIONS (19)
  - Infusion site swelling [Unknown]
  - Infusion site inflammation [Unknown]
  - Infusion site pruritus [Unknown]
  - Nasopharyngitis [Unknown]
  - Infusion site erythema [Unknown]
  - Fatigue [Unknown]
  - Rhinorrhoea [Unknown]
  - Hypotension [Unknown]
  - Peripheral swelling [Unknown]
  - Paraesthesia [Unknown]
  - Dizziness [Unknown]
  - Infusion site extravasation [Unknown]
  - Pyrexia [Unknown]
  - Limb discomfort [Unknown]
  - Infusion site pain [Unknown]
  - Depression [Unknown]
  - Pain in jaw [Unknown]
  - Nasal congestion [Unknown]
  - Productive cough [Unknown]

NARRATIVE: CASE EVENT DATE: 20160912
